FAERS Safety Report 8269757-6 (Version None)
Quarter: 2012Q2

REPORT INFORMATION
  Report Type: 
  Country: None (occurrence: None)
  Receive Date: 20120406
  Receipt Date: 20120328
  Transmission Date: 20120825
  Serious: Yes (Hospitalization)
  Sender: FDA-Public Use
  Company Number: ADR-2012-00483

PATIENT
  Age: 56 Year
  Sex: Female

DRUGS (2)
  1. BACLOFEN [Suspect]
     Indication: MUSCLE SPASTICITY
     Dosage: 130.17 MCG/DAY
  2. DILAUDID 500 MCG/ML [Concomitant]

REACTIONS (3)
  - MENTAL STATUS CHANGES [None]
  - OVERDOSE [None]
  - DEVICE COMPUTER ISSUE [None]
